FAERS Safety Report 25884098 (Version 1)
Quarter: 2025Q4

REPORT INFORMATION
  Report Type: Spontaneous
  Country: US (occurrence: None)
  Receive Date: 20251003
  Receipt Date: 20251003
  Transmission Date: 20260117
  Serious: Yes (Life-Threatening)
  Sender: FDA-CTU
  Company Number: None

PATIENT

DRUGS (2)
  1. GLUTATHIONE [Suspect]
     Active Substance: GLUTATHIONE
     Dosage: OTHER FREQUENCY : ONCE - IV PUSH;?
     Route: 042
     Dates: end: 20251003
  2. LACTATED RINGERS SOLUTION [Concomitant]
     Active Substance: CALCIUM CHLORIDE\POTASSIUM CHLORIDE\SODIUM CHLORIDE\SODIUM LACTATE

REACTIONS (8)
  - Infusion related reaction [None]
  - Cough [None]
  - Flushing [None]
  - Wheezing [None]
  - Throat tightness [None]
  - Heart rate increased [None]
  - Respiratory rate increased [None]
  - Hypertension [None]

NARRATIVE: CASE EVENT DATE: 20251003
